FAERS Safety Report 7436059-7 (Version None)
Quarter: 2011Q2

REPORT INFORMATION
  Report Type: 
  Country: None (occurrence: None)
  Receive Date: 20110425
  Receipt Date: 20110412
  Transmission Date: 20111010
  Serious: Yes (Other)
  Sender: FDA-Public Use
  Company Number: DE-BAYER-2011-031825

PATIENT
  Sex: Female

DRUGS (1)
  1. ASPIRIN COMPLEX GRANULAT [Suspect]
     Indication: INFLUENZA

REACTIONS (3)
  - HYPERSENSITIVITY [None]
  - UPPER AIRWAY OBSTRUCTION [None]
  - DYSPNOEA [None]
